FAERS Safety Report 13788461 (Version 2)
Quarter: 2017Q4

REPORT INFORMATION
  Report Type: Other
  Country: US (occurrence: US)
  Receive Date: 20170725
  Receipt Date: 20171130
  Transmission Date: 20180320
  Serious: Yes (Other)
  Sender: FDA-Public Use
  Company Number: US-VELOXIS PHARMACEUTICALS-2023712

PATIENT
  Age: 4 Year
  Sex: Male

DRUGS (8)
  1. METHOTREXATE. [Suspect]
     Active Substance: METHOTREXATE
  2. ALEMTUZUMAB [Suspect]
     Active Substance: ALEMTUZUMAB
  3. SIROLIMUS. [Suspect]
     Active Substance: SIROLIMUS
  4. FLUDARABINE [Suspect]
     Active Substance: FLUDARABINE PHOSPHATE
  5. ENVARSUS XR [Suspect]
     Active Substance: TACROLIMUS
     Indication: PROPHYLAXIS AGAINST GRAFT VERSUS HOST DISEASE
  6. MELPHALAN HYDROCHLORIDE. [Suspect]
     Active Substance: MELPHALAN HYDROCHLORIDE
  7. MYCOPHENOLATE MOFETIL. [Suspect]
     Active Substance: MYCOPHENOLATE MOFETIL
  8. CYCLOSPORINE. [Suspect]
     Active Substance: CYCLOSPORINE

REACTIONS (10)
  - Enterobacter infection [Unknown]
  - Intussusception [Recovered/Resolved]
  - Epstein-Barr viraemia [Unknown]
  - Upper respiratory tract infection [Unknown]
  - Thrombocytopenia [Recovered/Resolved]
  - Staphylococcal bacteraemia [Unknown]
  - Product use in unapproved indication [Unknown]
  - Clostridium difficile colitis [Unknown]
  - Otitis media bacterial [Unknown]
  - Rash maculo-papular [Recovering/Resolving]
